FAERS Safety Report 4872219-7 (Version None)
Quarter: 2005Q4

REPORT INFORMATION
  Report Type: 
  Country: None (occurrence: None)
  Receive Date: 20051201
  Receipt Date: 20050725
  Transmission Date: 20060501
  Serious: No
  Sender: FDA-Public Use
  Company Number: 2005PV000757

PATIENT
  Age: 53 Year
  Sex: Female
  Weight: 97.5234 kg

DRUGS (9)
  1. BYETTA [Suspect]
     Indication: DIABETES MELLITUS NON-INSULIN-DEPENDENT
     Dosage: 5 MG; BID; SC; 5 MG; BID; SC
     Route: 058
     Dates: start: 20050712, end: 20050714
  2. BYETTA [Suspect]
     Indication: DIABETES MELLITUS NON-INSULIN-DEPENDENT
     Dosage: 5 MG; BID; SC; 5 MG; BID; SC
     Route: 058
     Dates: start: 20050717, end: 20050727
  3. LOPRESSOR [Concomitant]
  4. ZESTRIL [Concomitant]
  5. NORVASC [Concomitant]
  6. GLUCOPHAGE [Concomitant]
  7. AMARYL [Concomitant]
  8. ASPIRIN [Concomitant]
  9. PREVACID [Concomitant]

REACTIONS (5)
  - ABDOMINAL DISTENSION [None]
  - ABDOMINAL PAIN UPPER [None]
  - CONSTIPATION [None]
  - HEADACHE [None]
  - WEIGHT DECREASED [None]
